FAERS Safety Report 8330311-9 (Version None)
Quarter: 2012Q2

REPORT INFORMATION
  Report Type: 
  Country: None (occurrence: None)
  Receive Date: 20120502
  Receipt Date: 20120418
  Transmission Date: 20120825
  Serious: Yes (Hospitalization)
  Sender: FDA-Public Use
  Company Number: JP-ACTELION-A-CH2011-52260

PATIENT
  Sex: Female
  Weight: 60 kg

DRUGS (15)
  1. FUROSEMIDE [Concomitant]
  2. VALSARTAN [Concomitant]
  3. OXYGEN [Concomitant]
  4. PRAVASTATIN SODIUM [Concomitant]
  5. TRACLEER [Suspect]
     Dosage: 62.5 MG, BID
     Route: 048
     Dates: start: 20110506, end: 20110724
  6. DIGOXIN [Concomitant]
  7. VERAPAMIL HYDROCHLORIDE [Concomitant]
  8. ETIZOLAM [Concomitant]
  9. TRACLEER [Suspect]
     Indication: PULMONARY ARTERIAL HYPERTENSION
     Dosage: 62.5 MG, BID
     Route: 048
     Dates: start: 20110421, end: 20110428
  10. TRACLEER [Suspect]
     Dosage: 125 MG, BID
     Route: 048
     Dates: start: 20110324, end: 20110420
  11. TRACLEER [Suspect]
     Dosage: 62.5 MG, BID
     Route: 048
     Dates: start: 20110201, end: 20110323
  12. TRACLEER [Suspect]
     Dosage: 125 MG, BID
     Route: 048
     Dates: start: 20110429, end: 20110505
  13. TRACLEER [Suspect]
     Dosage: 62.5 MG, QD
     Route: 048
     Dates: start: 20110725
  14. BERAPROST SODIUM [Concomitant]
  15. MAGNESIUM OXIDE [Concomitant]

REACTIONS (7)
  - HEPATIC FUNCTION ABNORMAL [None]
  - ALANINE AMINOTRANSFERASE INCREASED [None]
  - PNEUMONIA PNEUMOCOCCAL [None]
  - ASPARTATE AMINOTRANSFERASE INCREASED [None]
  - GAMMA-GLUTAMYLTRANSFERASE INCREASED [None]
  - ASTHMA [None]
  - WHITE BLOOD CELL COUNT INCREASED [None]
